FAERS Safety Report 18564251 (Version 1)
Quarter: 2020Q4

REPORT INFORMATION
  Report Type: Spontaneous
  Country: US (occurrence: US)
  Receive Date: 20201130
  Receipt Date: 20201130
  Transmission Date: 20210114
  Serious: Yes (Death)
  Sender: FDA-Public Use
  Company Number: None

PATIENT
  Age: 57 Year
  Sex: Male
  Weight: 108 kg

DRUGS (1)
  1. WALGREENS LOPERAMIDE HCL [Suspect]
     Active Substance: LOPERAMIDE HYDROCHLORIDE
     Indication: DIARRHOEA
     Dosage: ?          QUANTITY:1 CAPSULE(S);?
     Route: 048
     Dates: start: 20200501, end: 20200912

REACTIONS (3)
  - Accidental poisoning [None]
  - Anxiety [None]
  - Dependence [None]

NARRATIVE: CASE EVENT DATE: 20200911
